FAERS Safety Report 5191210-7 (Version None)
Quarter: 2006Q4

REPORT INFORMATION
  Report Type: 
  Country: None (occurrence: None)
  Receive Date: 20061220
  Receipt Date: 20061220
  Transmission Date: 20070319
  Serious: Yes (Other)
  Sender: FDA-Public Use
  Company Number: None

PATIENT
  Age: 69 Year
  Sex: Male
  Weight: 78.0187 kg

DRUGS (6)
  1. ERBITUX [Suspect]
     Indication: COLON CANCER
     Dosage: 100MG IV (TEST DOSE)
     Dates: start: 20060906
  2. ATROPINE [Concomitant]
  3. KYTRIL [Concomitant]
  4. BENADRYL [Concomitant]
  5. LORAZEPAM [Concomitant]
  6. TYLENOL [Concomitant]

REACTIONS (7)
  - DYSPNOEA [None]
  - ERYTHEMA [None]
  - FLUSHING [None]
  - HYPOTENSION [None]
  - LOSS OF CONSCIOUSNESS [None]
  - PALLOR [None]
  - RASH MACULAR [None]
